FAERS Safety Report 8311146-X (Version None)
Quarter: 2012Q2

REPORT INFORMATION
  Report Type: 
  Country: None (occurrence: None)
  Receive Date: 20120423
  Receipt Date: 20120409
  Transmission Date: 20120825
  Serious: Yes (Hospitalization)
  Sender: FDA-Public Use
  Company Number: DSA_56161_2012

PATIENT
  Age: 86 Year
  Sex: Female

DRUGS (7)
  1. DILTIAZEM HYDROCHLORIDE [Suspect]
     Indication: HYPERTENSION
     Dosage: (120 MG, FREQUENCY UNKNOWN ORAL)
     Route: 048
     Dates: start: 20090803, end: 20110209
  2. AZOPT [Concomitant]
  3. SOMAZINA [Concomitant]
  4. TRAVOPROST AND TIMOLOL [Concomitant]
  5. ASPIRIN [Concomitant]
  6. SIMVASTATIN [Concomitant]
  7. SERACTIL [Concomitant]

REACTIONS (2)
  - PLEURAL EFFUSION [None]
  - BRADYCARDIA [None]
